FAERS Safety Report 17147926 (Version 1)
Quarter: 2019Q4

REPORT INFORMATION
  Report Type: Spontaneous
  Country: US (occurrence: US)
  Receive Date: 20191212
  Receipt Date: 20191212
  Transmission Date: 20200122
  Serious: Yes (Other)
  Sender: FDA-Public Use
  Company Number: US-NAPPMUNDI-GBR-2019-0073611

PATIENT
  Age: 35 Week
  Sex: Male
  Weight: 1.92 kg

DRUGS (4)
  1. NICOTIANA TABACUM [Suspect]
     Active Substance: TOBACCO LEAF
     Indication: PRODUCT USED FOR UNKNOWN INDICATION
     Route: 064
  2. GABAPENTIN. [Suspect]
     Active Substance: GABAPENTIN
     Indication: PRODUCT USED FOR UNKNOWN INDICATION
     Dosage: UNK
     Route: 064
  3. BUPRENORPHINE. [Suspect]
     Active Substance: BUPRENORPHINE
     Indication: PRODUCT USED FOR UNKNOWN INDICATION
     Dosage: UNK
     Route: 064
  4. HEROIN [Suspect]
     Active Substance: DIAMORPHINE
     Indication: PRODUCT USED FOR UNKNOWN INDICATION
     Dosage: UNK
     Route: 064

REACTIONS (11)
  - Drug withdrawal syndrome neonatal [Recovering/Resolving]
  - Gastrooesophageal reflux disease [Recovering/Resolving]
  - Infantile vomiting [Recovering/Resolving]
  - Congenital multiplex arthrogryposis [Unknown]
  - Blindness [Unknown]
  - Hypoxic-ischaemic encephalopathy [Recovering/Resolving]
  - Low birth weight baby [Recovering/Resolving]
  - Foetal exposure during pregnancy [Recovering/Resolving]
  - Deafness [Unknown]
  - Feeding intolerance [Recovering/Resolving]
  - Neonatal complications of substance abuse [Recovering/Resolving]
